FAERS Safety Report 6167045-5 (Version None)
Quarter: 2009Q2

REPORT INFORMATION
  Report Type: 
  Country: None (occurrence: None)
  Receive Date: 20090424
  Receipt Date: 20090416
  Transmission Date: 20091009
  Serious: Yes (Death)
  Sender: FDA-Public Use
  Company Number: BE-PFIZER INC-2009199526

PATIENT

DRUGS (2)
  1. SUTENT [Suspect]
     Indication: RHABDOMYOSARCOMA
     Dosage: 50 MG, 1X/DAY EVERY DAY
     Route: 048
     Dates: start: 20090302, end: 20090317
  2. TRABECTEDIN [Suspect]
     Dates: start: 20090403

REACTIONS (1)
  - THROMBOCYTOPENIA [None]
